FAERS Safety Report 15988375 (Version 3)
Quarter: 2019Q2

REPORT INFORMATION
  Report Type: Spontaneous
  Country: ES (occurrence: ES)
  Receive Date: 20190221
  Receipt Date: 20190514
  Transmission Date: 20190711
  Serious: Yes (Other)
  Sender: FDA-Public Use
  Company Number: ES-ROCHE-2265718

PATIENT
  Age: 38 Year
  Sex: Female

DRUGS (17)
  1. DIAZEPAM. [Suspect]
     Active Substance: DIAZEPAM
     Indication: RENAL COLIC
     Route: 042
  2. BUSCOPAN [Suspect]
     Active Substance: BUTYLSCOPOLAMINE BROMIDE
     Indication: RENAL PAIN
     Route: 065
  3. DICLOFENAC SODIUM. [Suspect]
     Active Substance: DICLOFENAC SODIUM
     Indication: PAIN
     Dosage: 50 MG, BID (50 MG EVERY 12 HOURS)
     Route: 030
  4. BUSCOPAN [Suspect]
     Active Substance: BUTYLSCOPOLAMINE BROMIDE
     Indication: RENAL COLIC
  5. DOLANTIN [Suspect]
     Active Substance: MEPERIDINE
     Indication: RENAL COLIC
     Route: 065
  6. METAMIZOLE SODIUM [Suspect]
     Active Substance: METAMIZOLE SODIUM
     Indication: RENAL COLIC
     Route: 065
  7. DICLOFENAC [Suspect]
     Active Substance: DICLOFENAC
     Indication: RENAL COLIC
     Route: 030
  8. METAMIZOLE MAGNESIUM [Suspect]
     Active Substance: METAMIZOLE MAGNESIUM
     Indication: RENAL COLIC
  9. DIAZEPAM. [Suspect]
     Active Substance: DIAZEPAM
     Indication: NEPHRITIC SYNDROME
     Route: 065
  10. DICLOFENAC [Suspect]
     Active Substance: DICLOFENAC
     Indication: NEPHRITIC SYNDROME
     Route: 065
  11. DIPYRONE [Concomitant]
     Active Substance: DIPYRONE
     Indication: RENAL PAIN
     Route: 042
  12. PARACETAMOL [Suspect]
     Active Substance: ACETAMINOPHEN
     Indication: RENAL COLIC
     Route: 042
  13. BUSCOPAN [Suspect]
     Active Substance: BUTYLSCOPOLAMINE BROMIDE
     Indication: NEPHRITIC SYNDROME
     Route: 042
  14. DOLANTIN [Suspect]
     Active Substance: MEPERIDINE
     Indication: NEPHRITIC SYNDROME
  15. PARACETAMOL [Suspect]
     Active Substance: ACETAMINOPHEN
     Indication: NEPHRITIC SYNDROME
     Route: 065
  16. METAMIZOLE SODIUM [Suspect]
     Active Substance: METAMIZOLE SODIUM
     Indication: NEPHRITIC SYNDROME
     Route: 042
  17. METAMIZOLE MAGNESIUM [Suspect]
     Active Substance: METAMIZOLE MAGNESIUM
     Indication: NEPHRITIC SYNDROME
     Dosage: REPORTED AS METAMIZOLE^NORMON^
     Route: 065

REACTIONS (2)
  - Oligohydramnios [Unknown]
  - Exposure during pregnancy [Unknown]
